FAERS Safety Report 25101027 (Version 1)
Quarter: 2025Q1

REPORT INFORMATION
  Report Type: Report from Study
  Country: CA (occurrence: CA)
  Receive Date: 20250320
  Receipt Date: 20250320
  Transmission Date: 20250409
  Serious: Yes (Other)
  Sender: SANDOZ
  Company Number: CA-002147023-NVSC2020CA002164

PATIENT
  Age: 61 Year
  Sex: Male

DRUGS (3)
  1. ERELZI [Suspect]
     Active Substance: ETANERCEPT-SZZS
     Indication: Rheumatoid arthritis
     Dosage: 50 MG, QW
     Route: 058
     Dates: start: 20190608
  2. HUMIRA [Concomitant]
     Active Substance: ADALIMUMAB
     Indication: Product used for unknown indication
     Route: 065
  3. PREDNISONE [Concomitant]
     Active Substance: PREDNISONE
     Indication: Product used for unknown indication
     Route: 065

REACTIONS (19)
  - Psoriatic arthropathy [Unknown]
  - Oral surgery [Unknown]
  - Rheumatoid arthritis [Unknown]
  - Chest discomfort [Unknown]
  - Adverse drug reaction [Recovering/Resolving]
  - Inflammation [Unknown]
  - Cough [Unknown]
  - Dyspnoea [Unknown]
  - Asthma [Unknown]
  - Pain [Unknown]
  - Headache [Unknown]
  - Injection site pain [Unknown]
  - Psoriasis [Unknown]
  - Urticaria [Unknown]
  - Pruritus [Unknown]
  - Nasopharyngitis [Unknown]
  - Rhinorrhoea [Unknown]
  - Oropharyngeal pain [Unknown]
  - COVID-19 [Unknown]

NARRATIVE: CASE EVENT DATE: 20221005
